FAERS Safety Report 14007403 (Version 1)
Quarter: 2017Q3

REPORT INFORMATION
  Report Type: Spontaneous
  Country: US (occurrence: None)
  Receive Date: 20170922
  Receipt Date: 20170922
  Transmission Date: 20171128
  Serious: Yes (Hospitalization)
  Sender: FDA-Public Use
  Company Number: None

PATIENT
  Age: 48 Year
  Sex: Female

DRUGS (7)
  1. ENBREL [Suspect]
     Active Substance: ETANERCEPT
     Indication: PSORIASIS
     Route: 058
     Dates: start: 20141013
  2. GREEN COFFEE [Concomitant]
  3. MILKTHISTLE [Concomitant]
  4. DETOX [Concomitant]
  5. GARCINIA CAM [Concomitant]
  6. NIACIN. [Concomitant]
     Active Substance: NIACIN
  7. TEGREEN97 [Concomitant]

REACTIONS (1)
  - Cholecystectomy [None]

NARRATIVE: CASE EVENT DATE: 20170921
